FAERS Safety Report 7248707-5 (Version None)
Quarter: 2011Q1

REPORT INFORMATION
  Report Type: 
  Country: None (occurrence: None)
  Receive Date: 20110119
  Receipt Date: 20110119
  Transmission Date: 20110831
  Serious: Yes (Other)
  Sender: FDA-Public Use
  Company Number: None

PATIENT
  Age: 23 Month
  Sex: Female
  Weight: 11.3399 kg

DRUGS (1)
  1. TRIAD GROUP ALCOHOL SWAB 70% ISOPROPYL ALCOHOL TRIAD GROUP [Suspect]
     Indication: INFECTION PROPHYLAXIS
     Dosage: 1 PREP PAD PER USE 2-3 DAYS TOP
     Route: 061

REACTIONS (4)
  - SCAR [None]
  - DIABETES MELLITUS INADEQUATE CONTROL [None]
  - SKIN INFECTION [None]
  - INFUSION SITE INFECTION [None]
